FAERS Safety Report 11228325 (Version 2)
Quarter: 2015Q4

REPORT INFORMATION
  Report Type: Spontaneous
  Country: US (occurrence: US)
  Receive Date: 20150630
  Receipt Date: 20151222
  Transmission Date: 20160304
  Serious: Yes (Other)
  Sender: FDA-Public Use
  Company Number: US-ASTRAZENECA-2013SE94145

PATIENT
  Age: 771 Month
  Sex: Female

DRUGS (45)
  1. VICTOZA [Suspect]
     Active Substance: LIRAGLUTIDE
     Dosage: 18 MG/ 3 ML
     Route: 065
     Dates: start: 20120113
  2. GRIFULVIN V [Concomitant]
     Active Substance: GRISEOFULVIN
     Dates: start: 20120206
  3. AMOXICILLIN. [Concomitant]
     Active Substance: AMOXICILLIN
     Dates: start: 20100422
  4. AMBIEN CR [Concomitant]
     Active Substance: ZOLPIDEM TARTRATE
     Route: 065
  5. VICTOZA [Suspect]
     Active Substance: LIRAGLUTIDE
     Dosage: 18 MG/ 3 ML
     Route: 065
     Dates: start: 20130408
  6. TERBINAFINE HYDROCHLORIDE. [Concomitant]
     Active Substance: TERBINAFINE HYDROCHLORIDE
     Dates: start: 20100817
  7. SYNTHROID/ LEVOTHYROXINE [Concomitant]
     Dates: start: 20130509
  8. LORATADINE. [Concomitant]
     Active Substance: LORATADINE
     Route: 048
     Dates: start: 20130723
  9. VITAMIN B COMPLEX [Concomitant]
     Active Substance: CYANOCOBALAMIN\DEXPANTHENOL\NIACINAMIDE\PYRIDOXINE HYDROCHLORIDE\RIBOFLAVIN 5^-PHOSPHATE SODIUM\THIAMINE HYDROCHLORIDE\VITAMIN B COMPLEX
     Route: 048
     Dates: start: 20130723
  10. BENICAR [Concomitant]
     Active Substance: OLMESARTAN MEDOXOMIL
     Route: 065
  11. BYETTA [Suspect]
     Active Substance: EXENATIDE
     Route: 065
     Dates: start: 201001, end: 201004
  12. VICTOZA [Suspect]
     Active Substance: LIRAGLUTIDE
     Dosage: 18 MG/ 3 ML
     Route: 065
     Dates: start: 20110313
  13. GLYBURIDE. [Concomitant]
     Active Substance: GLYBURIDE
     Dates: start: 20100309
  14. DEXILANT [Concomitant]
     Active Substance: DEXLANSOPRAZOLE
     Dates: start: 20110518
  15. METFORMIN [Concomitant]
     Active Substance: METFORMIN HYDROCHLORIDE
     Dates: start: 20131025
  16. ALPRAZOLAM. [Concomitant]
     Active Substance: ALPRAZOLAM
     Dates: start: 20130603
  17. ASPIRIN. [Concomitant]
     Active Substance: ASPIRIN
     Route: 048
     Dates: start: 20130723
  18. WELLBUTRIN XL [Concomitant]
     Active Substance: BUPROPION HYDROCHLORIDE
     Route: 065
  19. BYETTA [Suspect]
     Active Substance: EXENATIDE
     Route: 065
     Dates: start: 20100118
  20. VICTOZA [Suspect]
     Active Substance: LIRAGLUTIDE
     Dosage: 18 MG/ 3 ML
     Route: 065
     Dates: start: 20100528
  21. PRISTIQ EXTENDED RELEASE [Concomitant]
     Active Substance: DESVENLAFAXINE SUCCINATE
     Dates: start: 20140501
  22. MELOXICAM. [Concomitant]
     Active Substance: MELOXICAM
     Dates: start: 20141027
  23. JANUVIA [Concomitant]
     Active Substance: SITAGLIPTIN PHOSPHATE
     Route: 065
  24. SEROQUEL [Concomitant]
     Active Substance: QUETIAPINE FUMARATE
     Route: 065
  25. BYETTA [Suspect]
     Active Substance: EXENATIDE
     Dosage: 5 MCG BID
     Route: 065
     Dates: start: 20091216
  26. VICTOZA [Suspect]
     Active Substance: LIRAGLUTIDE
     Route: 065
     Dates: start: 201004, end: 201305
  27. AVAPRO [Concomitant]
     Active Substance: IRBESARTAN
     Dates: start: 20100427
  28. CRANBERRY. [Concomitant]
     Active Substance: CRANBERRY
     Route: 048
     Dates: start: 20130723
  29. BIOTIN [Concomitant]
     Active Substance: BIOTIN
     Dates: start: 20130130
  30. TOPIRAMATE. [Concomitant]
     Active Substance: TOPIRAMATE
     Dates: start: 20140501
  31. TRAZODONE [Concomitant]
     Active Substance: TRAZODONE HYDROCHLORIDE
     Dates: start: 20140503
  32. FUROSEMIDE. [Concomitant]
     Active Substance: FUROSEMIDE
     Dates: start: 20140505
  33. BYETTA [Suspect]
     Active Substance: EXENATIDE
     Dosage: 5 MCG/0.02 ML TWO TIMES PER DAY BEFORE MORNING AND EVENING MEALS
     Route: 058
     Dates: start: 20100504
  34. AZITHROMYCIN [Concomitant]
     Active Substance: AZITHROMYCIN ANHYDROUS
     Dates: start: 20110518
  35. PHENAZOPYRIDINE. [Concomitant]
     Active Substance: PHENAZOPYRIDINE
     Dates: start: 20121021
  36. CYMBALTA [Concomitant]
     Active Substance: DULOXETINE HYDROCHLORIDE
     Dates: start: 20110518
  37. JANUMET [Concomitant]
     Active Substance: METFORMIN HYDROCHLORIDE\SITAGLIPTIN PHOSPHATE
     Dosage: 50-500 MG
     Route: 065
     Dates: start: 20100323
  38. PREDNISONE. [Concomitant]
     Active Substance: PREDNISONE
     Dates: start: 20100513
  39. PRILOSEC [Concomitant]
     Active Substance: OMEPRAZOLE MAGNESIUM
     Route: 065
  40. ZOCOR [Concomitant]
     Active Substance: SIMVASTATIN
     Route: 065
  41. SPIRONOLACTONE. [Concomitant]
     Active Substance: SPIRONOLACTONE
     Dates: start: 20100427
  42. LISINOPRIL. [Concomitant]
     Active Substance: LISINOPRIL
     Dates: start: 20101112
  43. FOLIC ACID. [Concomitant]
     Active Substance: FOLIC ACID
     Route: 048
     Dates: start: 20130723
  44. ESTRATEST [Concomitant]
     Active Substance: ESTROGENS, ESTERIFIED\METHYLTESTOSTERONE
     Route: 065
  45. SUPER B COMPLEX [Concomitant]
     Active Substance: CYANOCOBALAMIN\DEXPANTHENOL\NIACINAMIDE\PYRIDOXINE HYDROCHLORIDE\RIBOFLAVIN 5^-PHOSPHATE SODIUM\THIAMINE HYDROCHLORIDE\VITAMIN B COMPLEX
     Route: 065

REACTIONS (2)
  - Papillary thyroid cancer [Unknown]
  - Hypothyroidism [Unknown]

NARRATIVE: CASE EVENT DATE: 201301
